FAERS Safety Report 15902613 (Version 2)
Quarter: 2019Q1

REPORT INFORMATION
  Report Type: Report from Study
  Country: CL (occurrence: CL)
  Receive Date: 20190201
  Receipt Date: 20190227
  Transmission Date: 20190417
  Serious: Yes (Disabling)
  Sender: FDA-Public Use
  Company Number: CL-ROCHE-2251937

PATIENT
  Age: 40 Year
  Sex: Female

DRUGS (1)
  1. ACTEMRA [Suspect]
     Active Substance: TOCILIZUMAB
     Indication: RHEUMATOID ARTHRITIS
     Route: 058
     Dates: start: 20170516, end: 201810

REACTIONS (3)
  - Joint swelling [Recovered/Resolved]
  - Peripheral swelling [Not Recovered/Not Resolved]
  - Finger deformity [Not Recovered/Not Resolved]

NARRATIVE: CASE EVENT DATE: 2018
